FAERS Safety Report 18409186 (Version 1)
Quarter: 2020Q4

REPORT INFORMATION
  Report Type: Spontaneous
  Country: US (occurrence: US)
  Receive Date: 20201020
  Receipt Date: 20201020
  Transmission Date: 20210114
  Serious: Yes (Life-Threatening, Hospitalization, Other)
  Sender: FDA-Public Use
  Company Number: None

PATIENT
  Sex: Female
  Weight: 36.74 kg

DRUGS (16)
  1. SODIUM BICARBONATE. [Concomitant]
     Active Substance: SODIUM BICARBONATE
  2. MULTIVITAMIN [Concomitant]
     Active Substance: VITAMINS
  3. TAPENTADOL [Concomitant]
     Active Substance: TAPENTADOL
  4. PRIALT [Suspect]
     Active Substance: ZICONOTIDE ACETATE
     Indication: NECK PAIN
     Dates: start: 20200815, end: 20200924
  5. REMERON [Concomitant]
     Active Substance: MIRTAZAPINE
  6. PRILOSEC [Concomitant]
     Active Substance: OMEPRAZOLE MAGNESIUM
  7. SODIUM CHLORIDE. [Concomitant]
     Active Substance: SODIUM CHLORIDE
  8. CYMBALTA [Concomitant]
     Active Substance: DULOXETINE HYDROCHLORIDE
  9. ALBUTEROL. [Concomitant]
     Active Substance: ALBUTEROL
  10. CLONIDINE. [Concomitant]
     Active Substance: CLONIDINE
  11. LASIX [Concomitant]
     Active Substance: FUROSEMIDE
  12. NUCYNTA [Concomitant]
     Active Substance: TAPENTADOL HYDROCHLORIDE
  13. GABAPENTIN. [Concomitant]
     Active Substance: GABAPENTIN
  14. APRESOLINE HYDROCHLORIDE [Concomitant]
     Active Substance: HYDRALAZINE HYDROCHLORIDE
  15. ALDACTONE [Concomitant]
     Active Substance: SPIRONOLACTONE
  16. POTASSIUM [Concomitant]
     Active Substance: POTASSIUM

REACTIONS (8)
  - Irritability [None]
  - Aggression [None]
  - Decreased appetite [None]
  - Confusional state [None]
  - Hallucination [None]
  - Troponin increased [None]
  - Depressed level of consciousness [None]
  - Fluid intake reduced [None]

NARRATIVE: CASE EVENT DATE: 20200918
